FAERS Safety Report 17491484 (Version 1)
Quarter: 2020Q1

REPORT INFORMATION
  Report Type: Report from Study
  Country: DE (occurrence: DE)
  Receive Date: 20200303
  Receipt Date: 20200303
  Transmission Date: 20200409
  Serious: Yes (Hospitalization)
  Sender: FDA-Public Use
  Company Number: DE-ACTELION-A-NJ2020-202742

PATIENT
  Age: 84 Year
  Sex: Female

DRUGS (2)
  1. VENTAVIS [Suspect]
     Active Substance: ILOPROST
     Indication: PULMONARY ARTERIAL HYPERTENSION
     Dosage: UNK, TID
     Route: 055
     Dates: start: 20190515, end: 20200226
  2. MORPHINE [Concomitant]
     Active Substance: MORPHINE

REACTIONS (3)
  - Drug intolerance [Unknown]
  - Hospitalisation [Unknown]
  - Inappropriate schedule of product administration [Unknown]
